FAERS Safety Report 10089205 (Version 1)
Quarter: 2014Q2

REPORT INFORMATION
  Report Type: Spontaneous
  Country: US (occurrence: None)
  Receive Date: 20140418
  Receipt Date: 20140418
  Transmission Date: 20141212
  Serious: No
  Sender: FDA-Public Use
  Company Number: None

PATIENT
  Age: 58 Year
  Sex: 0
  Weight: 63.5 kg

DRUGS (1)
  1. PRIALT [Suspect]

REACTIONS (8)
  - Hallucination, auditory [None]
  - Dyspepsia [None]
  - Muscle spasms [None]
  - Suicidal ideation [None]
  - Tremor [None]
  - Depression [None]
  - Formication [None]
  - Weight decreased [None]
